FAERS Safety Report 4971841-7 (Version None)
Quarter: 2006Q2

REPORT INFORMATION
  Report Type: 
  Country: None (occurrence: None)
  Receive Date: 20060412
  Receipt Date: 20060412
  Transmission Date: 20061013
  Serious: Yes (Hospitalization)
  Sender: FDA-Public Use
  Company Number: None

PATIENT
  Age: 61 Year
  Sex: Male
  Weight: 79.3795 kg

DRUGS (2)
  1. CHLOROSEPTIC LOZENGE [Suspect]
     Indication: PHARYNGOLARYNGEAL PAIN
     Dosage: 1 LOZENGE   EVERY 2 HOURS   ORALLY
     Route: 048
     Dates: start: 20060325
  2. ZOCOR [Concomitant]

REACTIONS (2)
  - ANGIONEUROTIC OEDEMA [None]
  - DRUG HYPERSENSITIVITY [None]
